FAERS Safety Report 5836978-9 (Version None)
Quarter: 2008Q3

REPORT INFORMATION
  Report Type: 
  Country: None (occurrence: None)
  Receive Date: 20080805
  Receipt Date: 20080723
  Transmission Date: 20090109
  Serious: Yes (Other)
  Sender: FDA-Public Use
  Company Number: 2008BI018648

PATIENT
  Age: 53 Year
  Sex: Female

DRUGS (1)
  1. TYSABRI [Suspect]
     Indication: MULTIPLE SCLEROSIS
     Dosage: 300 MG;QM;IM
     Route: 030
     Dates: start: 20080317

REACTIONS (6)
  - ANAEMIA [None]
  - DIARRHOEA HAEMORRHAGIC [None]
  - FALL [None]
  - INFLUENZA [None]
  - PELVIC FRACTURE [None]
  - VOMITING [None]
